FAERS Safety Report 5613902-5 (Version None)
Quarter: 2008Q1

REPORT INFORMATION
  Report Type: 
  Country: None (occurrence: None)
  Receive Date: 20080205
  Receipt Date: 20080201
  Transmission Date: 20080703
  Serious: Yes (Life-Threatening)
  Sender: FDA-Public Use
  Company Number: JP-BAYER-200810199BYL

PATIENT
  Age: 82 Year
  Sex: Female

DRUGS (2)
  1. ASPIRIN [Suspect]
     Route: 048
  2. THYRADIN S [Concomitant]
     Route: 048

REACTIONS (3)
  - EPISTAXIS [None]
  - MELAENA [None]
  - THROMBOCYTOPENIA [None]
